FAERS Safety Report 8225872-4 (Version None)
Quarter: 2012Q1

REPORT INFORMATION
  Report Type: 
  Country: None (occurrence: None)
  Receive Date: 20120321
  Receipt Date: 20120315
  Transmission Date: 20120608
  Serious: Yes (Hospitalization)
  Sender: FDA-Public Use
  Company Number: BR-ROCHE-1049876

PATIENT
  Sex: Female
  Weight: 53 kg

DRUGS (2)
  1. MABTHERA [Suspect]
     Indication: RHEUMATOID ARTHRITIS
     Route: 042
     Dates: start: 20110115, end: 20110301
  2. PREDNISONE TAB [Concomitant]

REACTIONS (1)
  - THROMBOCYTOPENIA [None]
